FAERS Safety Report 26013772 (Version 1)
Quarter: 2025Q4

REPORT INFORMATION
  Report Type: Spontaneous
  Country: US (occurrence: US)
  Receive Date: 20251107
  Receipt Date: 20251107
  Transmission Date: 20260118
  Serious: No
  Sender: ARMSTRONG PHARMACEUTICALS, INC.
  Company Number: US-Armstrong Pharmaceuticals, Inc.-2188124

PATIENT
  Age: 63 Year
  Sex: Female
  Weight: 81.818 kg

DRUGS (3)
  1. PRIMATENE MIST [Suspect]
     Active Substance: EPINEPHRINE
     Indication: Asthma
  2. PRIMATENE MIST [Suspect]
     Active Substance: EPINEPHRINE
     Indication: Dyspnoea
  3. ALBUTEROL [Concomitant]
     Active Substance: ALBUTEROL

REACTIONS (1)
  - Tremor [Recovered/Resolved]

NARRATIVE: CASE EVENT DATE: 20250623
